FAERS Safety Report 4899656-9 (Version None)
Quarter: 2006Q1

REPORT INFORMATION
  Report Type: 
  Country: None (occurrence: None)
  Receive Date: 20060131
  Receipt Date: 20060112
  Transmission Date: 20060701
  Serious: Yes (Other)
  Sender: FDA-Public Use
  Company Number: TRP_0458_2005

PATIENT
  Age: 55 Year
  Sex: Male
  Weight: 68.4932 kg

DRUGS (5)
  1. RIBASPHERE [Suspect]
     Indication: HEPATITIS C
     Dosage: 200 MG BID PO
     Route: 048
     Dates: start: 20050614
  2. PEG-INTRON/PEGINTERFERON ALFA-2B/SCHERING-PLOUGH / INJECTION POWDER [Suspect]
     Indication: HEPATITIS C
     Dosage: 96 MCG QWK SC
     Route: 058
     Dates: start: 20050614
  3. PROZAC [Concomitant]
  4. HYZAAR [Concomitant]
  5. NORCO (HYDROCODONE BITARTRATE) TABLETS [Concomitant]

REACTIONS (4)
  - CHEST DISCOMFORT [None]
  - DYSPNOEA [None]
  - LABYRINTHITIS [None]
  - LOSS OF CONSCIOUSNESS [None]
